FAERS Safety Report 25504676 (Version 2)
Quarter: 2025Q3

REPORT INFORMATION
  Report Type: Spontaneous
  Country: US (occurrence: US)
  Receive Date: 20250702
  Receipt Date: 20250705
  Transmission Date: 20251021
  Serious: No
  Sender: TRAVERE THERAPEUTICS
  Company Number: US-TRAVERE-2025TVT00883

PATIENT
  Age: 46 Year
  Sex: Female

DRUGS (1)
  1. FILSPARI [Suspect]
     Active Substance: SPARSENTAN
     Indication: IgA nephropathy
     Route: 048
     Dates: start: 20250603

REACTIONS (7)
  - Diarrhoea [Recovering/Resolving]
  - Nausea [Recovered/Resolved]
  - Joint swelling [None]
  - Peripheral swelling [Recovering/Resolving]
  - Abdominal discomfort [Recovering/Resolving]
  - Off label use [Unknown]
  - Glomerular filtration rate decreased [Recovering/Resolving]
